FAERS Safety Report 7829985-8 (Version None)
Quarter: 2011Q4

REPORT INFORMATION
  Report Type: 
  Country: None (occurrence: None)
  Receive Date: 20111021
  Receipt Date: 20111012
  Transmission Date: 20120403
  Serious: Yes (Other)
  Sender: FDA-Public Use
  Company Number: US-JNJFOC-20110808756

PATIENT
  Sex: Female
  Weight: 104.33 kg

DRUGS (4)
  1. HUMULIN R [Concomitant]
     Indication: TYPE 2 DIABETES MELLITUS
     Route: 058
     Dates: start: 19760101
  2. RISPERIDONE [Suspect]
     Indication: DELUSION
     Route: 048
     Dates: end: 20110811
  3. ENALAPRIL MALEATE [Concomitant]
     Indication: HYPERTENSION
     Route: 048
  4. VYTORIN [Concomitant]
     Indication: BLOOD CHOLESTEROL INCREASED
     Dosage: 10/20 MG
     Route: 048

REACTIONS (5)
  - DISTURBANCE IN ATTENTION [None]
  - MEMORY IMPAIRMENT [None]
  - PSYCHOTIC DISORDER [None]
  - CHEMICAL POISONING [None]
  - CONFUSIONAL STATE [None]
